FAERS Safety Report 8972464 (Version 1)
Quarter: 2012Q4

REPORT INFORMATION
  Report Type: Spontaneous
  Country: CA (occurrence: None)
  Receive Date: 20121207
  Receipt Date: 20121207
  Transmission Date: 20130627
  Serious: Yes (Death)
  Sender: FDA-Public Use
  Company Number: DSA_61205_2012

PATIENT

DRUGS (2)
  1. DILTIAZEM [Suspect]
     Indication: PRODUCT USED FOR UNKNOWN INDICATION
     Dosage: DF, Once, not the prescribed amount)
  2. DILTIAZEM [Suspect]
     Dosage: DF, Once, not the prescribed amount)

REACTIONS (2)
  - Intentional overdose [None]
  - Completed suicide [None]
